FAERS Safety Report 4672622-4 (Version None)
Quarter: 2005Q2

REPORT INFORMATION
  Report Type: 
  Country: None (occurrence: None)
  Receive Date: 20050524
  Receipt Date: 20050517
  Transmission Date: 20051028
  Serious: Yes (Other)
  Sender: FDA-Public Use
  Company Number: GB-BRISTOL-MYERS SQUIBB COMPANY-12970547

PATIENT
  Age: 46 Year
  Sex: Female
  Weight: 44 kg

DRUGS (4)
  1. CISPLATIN [Suspect]
     Indication: MESOTHELIOMA
     Route: 042
     Dates: start: 20050215, end: 20050215
  2. ALIMTA [Suspect]
     Indication: MESOTHELIOMA
     Route: 042
     Dates: start: 20050215, end: 20050215
  3. FOLIC ACID [Concomitant]
     Route: 048
     Dates: start: 20050114
  4. CIMETIDINE [Concomitant]
     Indication: NIGHT SWEATS
     Route: 048

REACTIONS (1)
  - NEUTROPENIC SEPSIS [None]
